FAERS Safety Report 4678289-3 (Version None)
Quarter: 2005Q2

REPORT INFORMATION
  Report Type: 
  Country: None (occurrence: None)
  Receive Date: 20050601
  Receipt Date: 20050425
  Transmission Date: 20051028
  Serious: Yes (Hospitalization, Other)
  Sender: FDA-Public Use
  Company Number: PHNU2005DE01833

PATIENT
  Age: 69 Year
  Sex: Female
  Weight: 74 kg

DRUGS (7)
  1. CERTICAN [Suspect]
     Indication: RENAL TRANSPLANT
     Dosage: 0.75 MG, BID
     Route: 065
     Dates: start: 20041109, end: 20041219
  2. CERTICAN [Suspect]
     Dosage: 1 MG, BID
     Route: 065
     Dates: start: 20050421, end: 20050426
  3. CERTICAN [Suspect]
     Dosage: 0.5 MG, BID
     Route: 065
     Dates: start: 20050427, end: 20050428
  4. CERTICAN [Suspect]
     Dosage: 1.75 MG, BID
     Route: 065
     Dates: start: 20041220, end: 20050420
  5. SANDIMMUNE [Suspect]
     Indication: RENAL TRANSPLANT
     Dates: end: 20040101
  6. CELLCEPT [Concomitant]
     Indication: RENAL TRANSPLANT
  7. CORTICOSTEROID NOS [Concomitant]

REACTIONS (5)
  - BLOOD CREATININE INCREASED [None]
  - DRUG LEVEL DECREASED [None]
  - HAEMOGLOBIN DECREASED [None]
  - PANCYTOPENIA [None]
  - WHITE BLOOD CELL DISORDER [None]
